FAERS Safety Report 4269866-2 (Version None)
Quarter: 2004Q1

REPORT INFORMATION
  Report Type: 
  Country: None (occurrence: None)
  Receive Date: 20040112
  Receipt Date: 20040112
  Transmission Date: 20041129
  Serious: Yes (Hospitalization)
  Sender: FDA-Public Use
  Company Number: None

PATIENT
  Age: 82 Year
  Sex: Male

DRUGS (5)
  1. ATENOLOL [Suspect]
     Indication: HYPERTENSION
     Dosage: 50MG QD
     Dates: start: 20000601
  2. BACTRIM DS [Concomitant]
  3. NAPROXEN [Concomitant]
  4. RANITIDINE [Concomitant]
  5. ACIPHEX [Concomitant]

REACTIONS (1)
  - SYNCOPE [None]
